FAERS Safety Report 5455705-0 (Version None)
Quarter: 2007Q3

REPORT INFORMATION
  Report Type: 
  Country: None (occurrence: None)
  Receive Date: 20070914
  Receipt Date: 20070830
  Transmission Date: 20080115
  Serious: Yes (Other)
  Sender: FDA-Public Use
  Company Number: 002#4#2007-00139

PATIENT
  Age: 52 Year
  Sex: Male

DRUGS (6)
  1. NEUPRO [Suspect]
     Indication: PARKINSONISM
     Dosage: 2MG/24H,2 IN 1 D,TRANSDERMAL
     Route: 062
     Dates: start: 20070716, end: 20070729
  2. STALEVO 100 [Concomitant]
  3. AMANTADINE HCL [Concomitant]
  4. REQUIP [Concomitant]
  5. WELLBUTRIN [Concomitant]
  6. CLONOPIN [Concomitant]

REACTIONS (1)
  - SUICIDE ATTEMPT [None]
